FAERS Safety Report 8455081-5 (Version None)
Quarter: 2012Q2

REPORT INFORMATION
  Report Type: 
  Country: None (occurrence: None)
  Receive Date: 20120621
  Receipt Date: 20120611
  Transmission Date: 20120825
  Serious: Yes (Other)
  Sender: FDA-Public Use
  Company Number: JP-VERTEX PHARMACEUTICALS INC.-AE-2012-008839

PATIENT
  Age: 60 Year
  Sex: Female

DRUGS (18)
  1. PEG-INTRON [Concomitant]
     Indication: HEPATITIS C
     Route: 058
     Dates: start: 20120217, end: 20120417
  2. JUZENTAIHOTO [Concomitant]
     Route: 048
  3. NEO-MERCAZOLE TAB [Concomitant]
     Route: 048
  4. REBETOL [Concomitant]
     Route: 048
     Dates: start: 20120316, end: 20120328
  5. LENDORMIN D [Concomitant]
     Route: 048
     Dates: start: 20120216, end: 20120508
  6. TELAVIC (TELAPREVIR) [Suspect]
     Route: 048
     Dates: start: 20120309, end: 20120417
  7. REBETOL [Concomitant]
     Indication: HEPATITIS C
     Route: 048
     Dates: start: 20120217, end: 20120302
  8. REBETOL [Concomitant]
     Route: 048
     Dates: start: 20120303, end: 20120315
  9. REBETOL [Concomitant]
     Route: 048
     Dates: start: 20120329, end: 20120417
  10. FERROUS CITRATE [Concomitant]
     Route: 048
     Dates: end: 20120508
  11. OLOPATADINE HCL [Concomitant]
     Route: 048
     Dates: start: 20120217, end: 20120220
  12. TELAVIC (TELAPREVIR) [Suspect]
     Indication: HEPATITIS C
     Route: 048
     Dates: start: 20120217, end: 20120308
  13. URSO 250 [Concomitant]
     Route: 048
  14. PEG-INTRON [Concomitant]
     Route: 051
     Dates: start: 20120425
  15. BASEN OD [Concomitant]
     Route: 048
  16. VALSARTAN  AND HYDROCHLOROTHIAZIDE [Concomitant]
     Route: 048
  17. EPINASTINE HYDROCHLORIDE [Concomitant]
     Route: 048
     Dates: start: 20120221
  18. LEVOTHYROXINE SODIUM [Concomitant]
     Route: 048

REACTIONS (1)
  - NEUTROPHIL COUNT DECREASED [None]
